FAERS Safety Report 4545328-X (Version None)
Quarter: 2005Q1

REPORT INFORMATION
  Report Type: 
  Country: None (occurrence: None)
  Receive Date: 20050103
  Receipt Date: 20041222
  Transmission Date: 20050727
  Serious: Yes (Death)
  Sender: FDA-Public Use
  Company Number: 2004118103

PATIENT
  Age: 50 Year
  Sex: Female

DRUGS (2)
  1. CELEBREX [Suspect]
     Indication: ILL-DEFINED DISORDER
     Dosage: 400 MG ( 200 MG, 2 IN 1 D), ORAL
     Route: 048
     Dates: end: 20041208
  2. ACETAMINOPHEN [Concomitant]

REACTIONS (1)
  - HEPATITIS FULMINANT [None]
